FAERS Safety Report 10458571 (Version 2)
Quarter: 2014Q4

REPORT INFORMATION
  Report Type: Spontaneous
  Country: GB (occurrence: GB)
  Receive Date: 20140917
  Receipt Date: 20141104
  Transmission Date: 20150528
  Serious: Yes (Hospitalization)
  Sender: FDA-Public Use
  Company Number: PHFR2014GB006100

PATIENT
  Age: 23 Year
  Sex: Female

DRUGS (8)
  1. MOVICOL                            /01749801/ [Concomitant]
     Indication: CONSTIPATION
     Dosage: UNK
     Route: 048
  2. LACTULOSE. [Concomitant]
     Active Substance: LACTULOSE
     Indication: CONSTIPATION
     Dosage: 20 ML, DAILY
     Route: 048
     Dates: start: 20140520
  3. CLOZARIL [Suspect]
     Active Substance: CLOZAPINE
     Indication: PSYCHOTIC DISORDER
     Dosage: 450 MG, DAILY
     Route: 048
     Dates: start: 20140423
  4. COLGATE DURAPHAT [Concomitant]
     Active Substance: SODIUM FLUORIDE
     Indication: POOR DENTAL CONDITION
     Dosage: TOOTHPASTE, 3 USES
     Route: 048
     Dates: start: 20140516
  5. HYOSCINE HYDROBROMIDE [Concomitant]
     Active Substance: SCOPOLAMINE
     Indication: SALIVARY HYPERSECRETION
     Dosage: 900 UG, DAILY
     Route: 048
     Dates: start: 20140613
  6. MOVICOL                            /01749801/ [Concomitant]
     Dosage: 1 DF (SACHET) DAILY
     Route: 048
     Dates: start: 20141024
  7. CLOZARIL [Suspect]
     Active Substance: CLOZAPINE
     Indication: SCHIZOPHRENIA
     Dosage: UNK
     Route: 065
     Dates: start: 20130814
  8. CORSODYL [Concomitant]
     Active Substance: CHLORHEXIDINE GLUCONATE
     Indication: POOR DENTAL CONDITION
     Dosage: 20 ML, DAILY
     Route: 048
     Dates: start: 20140516

REACTIONS (12)
  - Haemoconcentration [Recovered/Resolved]
  - Anxiety [Recovered/Resolved]
  - Starvation [Recovered/Resolved]
  - Electrolyte imbalance [Recovered/Resolved]
  - Antipsychotic drug level above therapeutic [Recovered/Resolved]
  - Malaise [Recovered/Resolved]
  - Conduction disorder [Recovered/Resolved]
  - Feeding disorder [Recovered/Resolved]
  - Hypophagia [Recovered/Resolved]
  - Arrhythmia [Recovered/Resolved]
  - Dehydration [Recovered/Resolved]
  - Tachycardia [Recovered/Resolved]

NARRATIVE: CASE EVENT DATE: 20140829
